FAERS Safety Report 25356160 (Version 2)
Quarter: 2025Q3

REPORT INFORMATION
  Report Type: Report from Study
  Country: CA (occurrence: CA)
  Receive Date: 20250525
  Receipt Date: 20250708
  Transmission Date: 20251020
  Serious: Yes (Hospitalization)
  Sender: ABBVIE
  Company Number: CA-ABBVIE-6293573

PATIENT
  Age: 74 Year
  Sex: Female

DRUGS (2)
  1. RINVOQ [Suspect]
     Active Substance: UPADACITINIB
     Indication: Colitis ulcerative
     Dosage: FORM STRENGTH: 15 MILLIGRAM
     Route: 048
     Dates: start: 20240308
  2. RINVOQ [Suspect]
     Active Substance: UPADACITINIB
     Indication: Colitis ulcerative
     Dosage: FORM STRENGTH: 15 MILLIGRAM
     Route: 048

REACTIONS (15)
  - Abdominal pain lower [Not Recovered/Not Resolved]
  - Abdominal rigidity [Unknown]
  - Diverticulitis intestinal perforated [Recovered/Resolved]
  - Chills [Unknown]
  - Diarrhoea [Not Recovered/Not Resolved]
  - Abdominal distension [Unknown]
  - Abdominal tenderness [Unknown]
  - Abdominal distension [Unknown]
  - White blood cell count increased [Unknown]
  - Neutrophil count increased [Unknown]
  - Blood pH increased [Unknown]
  - PCO2 abnormal [Unknown]
  - Defaecation urgency [Recovering/Resolving]
  - Gastrointestinal pain [Recovering/Resolving]
  - Infection [Recovered/Resolved]
